FAERS Safety Report 9917211 (Version 1)
Quarter: 2014Q1

REPORT INFORMATION
  Report Type: Spontaneous
  Country: US (occurrence: US)
  Receive Date: 20140221
  Receipt Date: 20140221
  Transmission Date: 20141002
  Serious: No
  Sender: FDA-Public Use
  Company Number: US-BAYER-2014-022045

PATIENT
  Age: 91 Year
  Sex: Male
  Weight: 80.73 kg

DRUGS (4)
  1. ALEVE LIQUID GELS [Suspect]
     Indication: PAIN
     Dosage: 1 DF, QD
     Route: 048
     Dates: start: 20140203, end: 20140206
  2. ALEVE LIQUID GELS [Suspect]
     Indication: INFLAMMATION
  3. ALEVE TABLET [Suspect]
     Indication: PAIN
     Dosage: 1 DF, UNK
     Route: 048
     Dates: start: 20140207
  4. ALEVE TABLET [Suspect]
     Indication: INFLAMMATION

REACTIONS (3)
  - Foreign body [Recovered/Resolved]
  - Intentional drug misuse [None]
  - Intentional drug misuse [None]
